FAERS Safety Report 15472719 (Version 20)
Quarter: 2021Q4

REPORT INFORMATION
  Report Type: Spontaneous
  Country: US (occurrence: US)
  Receive Date: 20181008
  Receipt Date: 20211210
  Transmission Date: 20220303
  Serious: Yes (Hospitalization, Other)
  Sender: FDA-Public Use
  Company Number: US-PFIZER INC-2018394559

PATIENT
  Age: 76 Year
  Sex: Female
  Weight: 104 kg

DRUGS (15)
  1. LYRICA [Suspect]
     Active Substance: PREGABALIN
     Indication: Pain
     Dosage: 150 MG, 2X/DAY (3 CAPSULES BY MOUTH TWO TIMES A DAY)
     Route: 048
     Dates: start: 20171130, end: 2017
  2. LYRICA [Suspect]
     Active Substance: PREGABALIN
     Indication: Fibromyalgia
     Dosage: 150 MG, 2X/DAY
     Route: 048
     Dates: start: 2017
  3. LYRICA [Suspect]
     Active Substance: PREGABALIN
     Indication: Neuropathy peripheral
     Dosage: 150 MG, DAILY (DAILY TWO IN THE MORNING AND ONE AT NIGHT)
     Route: 048
  4. LYRICA [Suspect]
     Active Substance: PREGABALIN
     Indication: Arthritis
     Dosage: 150 MG, 2X/DAY (50MG CAPSULE, THREE CAPSULES TWO TIMES A DAY)
  5. LYRICA [Suspect]
     Active Substance: PREGABALIN
     Indication: Neuropathic arthropathy
     Dosage: UNK, 2X/DAY (3 TO 4 PILLS A TWICE A DAY)
     Route: 048
     Dates: start: 20190613, end: 2019
  6. LYRICA [Suspect]
     Active Substance: PREGABALIN
     Indication: Depression
     Dosage: 50 MG, 2X/DAY
     Route: 048
     Dates: start: 2019
  7. LYRICA [Suspect]
     Active Substance: PREGABALIN
     Indication: Arthropathy
     Dosage: 200 MG, 2X/DAY (TAKE 4 CAPSULE BY MOUTH TWICE A DAY)
     Route: 048
  8. LYRICA [Suspect]
     Active Substance: PREGABALIN
     Indication: Diabetic neuropathy
     Dosage: 250 MG, 2X/DAY, (TAKE 5 CAPSULES BY MOUTH 2 TIMES A DAY MAX DAILY AMOUNT: 500 MG)
     Route: 048
  9. LYRICA [Suspect]
     Active Substance: PREGABALIN
     Dosage: 250 MG, DAILY
     Route: 048
  10. ASPIRIN [Concomitant]
     Active Substance: ASPIRIN
     Dosage: 81 MG
     Dates: start: 2018
  11. DULOXETINE [Concomitant]
     Active Substance: DULOXETINE
     Indication: Pain
     Dosage: 60 MG, 2X/DAY
  12. DULOXETINE [Concomitant]
     Active Substance: DULOXETINE
     Indication: Antidepressant therapy
  13. CHONDROITIN SULFATE (BOVINE)\GLUCOSAMINE SULFATE [Concomitant]
     Active Substance: CHONDROITIN SULFATE (BOVINE)\GLUCOSAMINE SULFATE
     Dosage: 2 DF, DAILY
     Dates: start: 2018
  14. LIPITOR [Concomitant]
     Active Substance: ATORVASTATIN CALCIUM
     Dosage: 10 MG
     Dates: start: 201811
  15. VITAMIN B12 [Concomitant]
     Active Substance: CYANOCOBALAMIN
     Indication: Vitamin supplementation
     Dosage: 500 MG, 1X/DAY
     Dates: start: 201905

REACTIONS (13)
  - Insomnia [Not Recovered/Not Resolved]
  - Cataract [Unknown]
  - Therapeutic product effect incomplete [Unknown]
  - Gait disturbance [Not Recovered/Not Resolved]
  - Cough [Not Recovered/Not Resolved]
  - Blood cholesterol increased [Recovered/Resolved]
  - Weight increased [Not Recovered/Not Resolved]
  - Sensitivity to weather change [Not Recovered/Not Resolved]
  - Fatigue [Not Recovered/Not Resolved]
  - Pain [Unknown]
  - Product prescribing issue [Unknown]
  - Intentional product use issue [Unknown]
  - Dysphonia [Unknown]
